FAERS Safety Report 4370994-1 (Version None)
Quarter: 2004Q2

REPORT INFORMATION
  Report Type: 
  Country: None (occurrence: None)
  Receive Date: 20040526
  Receipt Date: 20040510
  Transmission Date: 20050107
  Serious: Yes (Hospitalization)
  Sender: FDA-Public Use
  Company Number: 248422

PATIENT
  Age: 20 Year
  Sex: Male
  Weight: 80 kg

DRUGS (1)
  1. NEOTIGASON (ACITRETIN) 25 MG [Suspect]
     Indication: PSORIASIS
     Dosage: 70 MG DAILY ORAL
     Route: 048
     Dates: start: 20001007, end: 20001101

REACTIONS (3)
  - ACCIDENTAL OVERDOSE [None]
  - HEADACHE [None]
  - NAUSEA [None]
